FAERS Safety Report 10511119 (Version 2)
Quarter: 2014Q4

REPORT INFORMATION
  Report Type: Spontaneous
  Country: US (occurrence: US)
  Receive Date: 20141010
  Receipt Date: 20141010
  Transmission Date: 20150528
  Serious: No
  Sender: FDA-Public Use
  Company Number: US-ASTRAZENECA-2014SE74917

PATIENT
  Age: 63 Year
  Sex: Female
  Weight: 89.4 kg

DRUGS (8)
  1. UNSPECIFIED DRUG THAT BEGINS WITH O [Concomitant]
     Indication: INCONTINENCE
  2. LYRICA [Concomitant]
     Active Substance: PREGABALIN
  3. CRESTOR [Suspect]
     Active Substance: ROSUVASTATIN CALCIUM
     Indication: BLOOD CHOLESTEROL INCREASED
     Route: 048
     Dates: start: 2013
  4. NEXIUM [Suspect]
     Active Substance: ESOMEPRAZOLE MAGNESIUM
     Indication: GASTROOESOPHAGEAL REFLUX DISEASE
     Route: 048
  5. ZOLOFT [Concomitant]
     Active Substance: SERTRALINE HYDROCHLORIDE
  6. CRESTOR [Suspect]
     Active Substance: ROSUVASTATIN CALCIUM
     Indication: BLOOD CHOLESTEROL INCREASED
     Route: 048
     Dates: start: 2013
  7. UNSPECIFIED THYROID MEDICATION [Concomitant]
     Active Substance: UNSPECIFIED INGREDIENT
     Indication: THYROID DISORDER
  8. LASIX [Concomitant]
     Active Substance: FUROSEMIDE

REACTIONS (5)
  - Intentional product misuse [Unknown]
  - Hypokinesia [Unknown]
  - Intentional product use issue [Unknown]
  - Fibromyalgia [Unknown]
  - Oedema peripheral [Unknown]

NARRATIVE: CASE EVENT DATE: 201407
